FAERS Safety Report 7912410-6 (Version None)
Quarter: 2011Q4

REPORT INFORMATION
  Report Type: 
  Country: None (occurrence: None)
  Receive Date: 20111114
  Receipt Date: 20111109
  Transmission Date: 20120403
  Serious: Yes (Other)
  Sender: FDA-Public Use
  Company Number: GB-PFIZER INC-2011275257

PATIENT
  Age: 57 Year
  Sex: Female
  Weight: 70 kg

DRUGS (4)
  1. TIBOLONE [Suspect]
     Indication: MENOPAUSAL SYMPTOMS
     Dosage: 2.5 MG, 1X/DAY
     Route: 048
     Dates: start: 20090814, end: 20110516
  2. CLOPIDOGREL [Concomitant]
     Indication: CHEST PAIN
     Dosage: 75 MG, UNK
     Route: 048
     Dates: start: 20110527, end: 20110808
  3. MISOPROSTOL [Suspect]
     Indication: ARTHRALGIA
     Dosage: UNK
     Route: 048
     Dates: start: 20080617, end: 20110818
  4. RANITIDINE [Concomitant]
     Indication: GASTROOESOPHAGEAL REFLUX DISEASE
     Dosage: 150 MG, 2X/DAY
     Route: 048
     Dates: start: 20110616

REACTIONS (1)
  - OVARIAN CANCER METASTATIC [None]
